FAERS Safety Report 15476024 (Version 3)
Quarter: 2020Q3

REPORT INFORMATION
  Report Type: Spontaneous
  Country: NL (occurrence: NL)
  Receive Date: 20181009
  Receipt Date: 20200914
  Transmission Date: 20201102
  Serious: Yes (Hospitalization, Other)
  Sender: FDA-Public Use
  Company Number: NL-ROCHE-2194101

PATIENT
  Age: 54 Year
  Sex: Male

DRUGS (6)
  1. HERCEPTIN [Suspect]
     Active Substance: TRASTUZUMAB
     Indication: SALIVARY GLAND CANCER
     Route: 065
     Dates: start: 20170315, end: 20170919
  2. PERJETA [Suspect]
     Active Substance: PERTUZUMAB
     Indication: SALIVARY GLAND CANCER
     Route: 065
     Dates: start: 20170315, end: 20170919
  3. TAMOXIFEN [Concomitant]
     Active Substance: TAMOXIFEN
     Dates: start: 20160530
  4. DOCETAXEL. [Suspect]
     Active Substance: DOCETAXEL
     Indication: SALIVARY GLAND CANCER
     Route: 065
     Dates: start: 20170315, end: 20170919
  5. DENOSUMAB [Concomitant]
     Active Substance: DENOSUMAB
  6. CASODEX [Concomitant]
     Active Substance: BICALUTAMIDE
     Dates: start: 20160530

REACTIONS (6)
  - Ejection fraction decreased [Recovered/Resolved]
  - Off label use [Unknown]
  - Cardiac failure [Recovered/Resolved]
  - Pneumonia [Recovered/Resolved]
  - Dyspnoea [Recovered/Resolved]
  - Intentional product use issue [Unknown]

NARRATIVE: CASE EVENT DATE: 20171005
